FAERS Safety Report 9619371 (Version 1)
Quarter: 2013Q4

REPORT INFORMATION
  Report Type: Spontaneous
  Country: US (occurrence: US)
  Receive Date: 20131014
  Receipt Date: 20131014
  Transmission Date: 20140711
  Serious: No
  Sender: FDA-Public Use
  Company Number: US-BAYER-2013-123538

PATIENT
  Age: 52 Year
  Sex: Female
  Weight: 72.56 kg

DRUGS (1)
  1. MIDOL EXTENDED RELIEF CAPLET [Suspect]
     Indication: DYSMENORRHOEA
     Dosage: UNK UNK, PRN
     Route: 048
     Dates: start: 201309

REACTIONS (2)
  - Drug ineffective [None]
  - Extra dose administered [None]
